FAERS Safety Report 4761485-4 (Version None)
Quarter: 2005Q3

REPORT INFORMATION
  Report Type: 
  Country: None (occurrence: None)
  Receive Date: 20050906
  Receipt Date: 20050829
  Transmission Date: 20060218
  Serious: Yes (Hospitalization, Other)
  Sender: FDA-Public Use
  Company Number: US-GLAXOSMITHKLINE-A0572201A

PATIENT
  Age: 68 Year
  Sex: Male

DRUGS (26)
  1. COREG [Suspect]
     Indication: DRUG USE FOR UNKNOWN INDICATION
     Dosage: 25MG TWICE PER DAY
     Route: 048
  2. LANOXIN [Concomitant]
  3. LISINOPRIL [Concomitant]
  4. SPIRONOLACTONE [Concomitant]
  5. DEMADEX [Concomitant]
  6. POTASSIUM [Concomitant]
  7. WARFARIN [Concomitant]
  8. ALLOPURINOL [Concomitant]
  9. SOTALOL HCL [Concomitant]
  10. INSULIN [Concomitant]
  11. VITAMIN E [Concomitant]
  12. UNKNOWN MEDICATION [Concomitant]
  13. CHLOROPHYLL [Concomitant]
  14. L-CARNITINE [Concomitant]
  15. CO Q 10 [Concomitant]
  16. FLAX SEED [Concomitant]
  17. VITAMIN B COMPLEX CAP [Concomitant]
  18. HYDROCHLORIC ACID [Concomitant]
  19. CRANBERRY [Concomitant]
  20. CHROMIUM [Concomitant]
  21. GAMMA LINOLENIC ACID [Concomitant]
  22. ALPHA LIPOIC ACID [Concomitant]
  23. CONJUGATED LINOLEIC ACID [Concomitant]
  24. CORDYCEPS SINENSIS [Concomitant]
  25. GASTROINTESTINAL DRUG [Concomitant]
  26. BUCHU [Concomitant]

REACTIONS (7)
  - DRUG INEFFECTIVE [None]
  - DYSPNOEA [None]
  - HYPOTENSION [None]
  - JOINT SWELLING [None]
  - OEDEMA PERIPHERAL [None]
  - VENTRICULAR FIBRILLATION [None]
  - WEIGHT INCREASED [None]
